FAERS Safety Report 20331977 (Version 1)
Quarter: 2022Q1

REPORT INFORMATION
  Report Type: Spontaneous
  Country: US (occurrence: None)
  Receive Date: 20220113
  Receipt Date: 20220113
  Transmission Date: 20220424
  Serious: Yes (Life-Threatening, Other)
  Sender: FDA-Public Use
  Company Number: None

PATIENT
  Age: 51 Year
  Sex: Female
  Weight: 72 kg

DRUGS (3)
  1. SUPREP BOWEL PREP [Suspect]
     Active Substance: MAGNESIUM SULFATE\POTASSIUM SULFATE\SODIUM SULFATE
     Indication: Colonoscopy
     Dosage: OTHER QUANTITY : 32 OUNCE(S);?OTHER FREQUENCY : 2 DAYS IN A ROW;?
     Route: 048
     Dates: start: 20220103, end: 20220104
  2. METOPROLOL [Concomitant]
     Active Substance: METOPROLOL
  3. AMLODIPINE BESYLATE [Concomitant]
     Active Substance: AMLODIPINE BESYLATE

REACTIONS (6)
  - Impaired work ability [None]
  - Headache [None]
  - Nausea [None]
  - Fatigue [None]
  - Asthenia [None]
  - Hypertension [None]

NARRATIVE: CASE EVENT DATE: 20220104
